FAERS Safety Report 9240777 (Version 1)
Quarter: 2013Q2

REPORT INFORMATION
  Report Type: Spontaneous
  Country: US (occurrence: None)
  Receive Date: 20130418
  Receipt Date: 20130418
  Transmission Date: 20140414
  Serious: Yes (Life-Threatening, Hospitalization)
  Sender: FDA-Public Use
  Company Number: None

PATIENT
  Age: 67 Year
  Sex: Male
  Weight: 88.6 kg

DRUGS (1)
  1. PIPERACILLIN/TAZOBACTAM [Suspect]
     Indication: SURGERY
     Route: 042
     Dates: start: 20130315, end: 20130315

REACTIONS (6)
  - Anaphylactic reaction [None]
  - Rash [None]
  - Urticaria [None]
  - Pruritus [None]
  - Eye swelling [None]
  - Hypersensitivity [None]
